FAERS Safety Report 12091771 (Version 1)
Quarter: 2016Q1

REPORT INFORMATION
  Report Type: Spontaneous
  Country: RS (occurrence: RS)
  Receive Date: 20160218
  Receipt Date: 20160218
  Transmission Date: 20160526
  Serious: Yes (Death, Other)
  Sender: FDA-Public Use
  Company Number: RS-TWI PHARMACEUTICAL, INC-2016SCTW000003

PATIENT

DRUGS (3)
  1. NIFEDIPINE. [Interacting]
     Active Substance: NIFEDIPINE
     Indication: HYPERTENSION
     Dosage: UNK UNK, UNKNOWN
     Route: 065
  2. METOPROLOL. [Interacting]
     Active Substance: METOPROLOL
     Indication: HYPERTENSION
     Dosage: UNK UNK, UNKNOWN
     Route: 065
  3. DIAZEPAM. [Suspect]
     Active Substance: DIAZEPAM
     Indication: HYPERTENSION
     Dosage: UNK UNK, UNKNOWN
     Route: 065

REACTIONS (10)
  - Shock [Unknown]
  - Atrioventricular block complete [Unknown]
  - Atrioventricular block second degree [Unknown]
  - Cardiac arrest [Fatal]
  - Overdose [Unknown]
  - Blood glucose increased [Unknown]
  - Coma [Unknown]
  - Drug interaction [Unknown]
  - Pulse abnormal [Unknown]
  - Toxicity to various agents [Fatal]
